FAERS Safety Report 18398904 (Version 1)
Quarter: 2020Q4

REPORT INFORMATION
  Report Type: Spontaneous
  Country: CN (occurrence: CN)
  Receive Date: 20201019
  Receipt Date: 20201019
  Transmission Date: 20210114
  Serious: Yes (Hospitalization)
  Sender: FDA-Public Use
  Company Number: CN-IGSA-BIG0011644

PATIENT
  Age: 51 Year
  Sex: Female
  Weight: 60 kg

DRUGS (4)
  1. ALBUTEIN [Suspect]
     Active Substance: ALBUMIN HUMAN
     Indication: CERVIX CARCINOMA
     Dosage: 50 MILLILITER, SINGLE
     Route: 042
     Dates: start: 20200925, end: 20200927
  2. ALBUTEIN [Suspect]
     Active Substance: ALBUMIN HUMAN
     Indication: BLOOD ALBUMIN DECREASED
  3. INTRALIPID [Suspect]
     Active Substance: EGG PHOSPHOLIPIDS\GLYCERIN\SOYBEAN OIL
     Indication: CERVIX CARCINOMA
     Dosage: 250 MILLILITER, SINGLE
     Route: 042
     Dates: start: 20200924, end: 20200927
  4. COMPOUND AMINO ACID (18AA) /06796401/ [Suspect]
     Active Substance: AMINO ACIDS, SOURCE UNSPECIFIED
     Indication: CERVIX CARCINOMA
     Dosage: 250 MILLILITER, SINGLE
     Route: 042
     Dates: start: 20200924, end: 20200927

REACTIONS (1)
  - Hepatic function abnormal [Unknown]

NARRATIVE: CASE EVENT DATE: 20200928
